FAERS Safety Report 8294784-2 (Version None)
Quarter: 2012Q2

REPORT INFORMATION
  Report Type: 
  Country: None (occurrence: None)
  Receive Date: 20120418
  Receipt Date: 20120411
  Transmission Date: 20120825
  Serious: Yes (Other)
  Sender: FDA-Public Use
  Company Number: US-AMGEN-USASP2012022839

PATIENT
  Age: 64 Year
  Sex: Female

DRUGS (1)
  1. ENBREL [Suspect]
     Indication: RHEUMATOID ARTHRITIS
     Dosage: 25 MG, 2 TIMES/WK
     Dates: start: 20000201

REACTIONS (8)
  - SUTURE RELATED COMPLICATION [None]
  - DRY EYE [None]
  - CORNEAL CYST [None]
  - ERYTHEMA [None]
  - GALLBLADDER DISORDER [None]
  - IMPAIRED HEALING [None]
  - INJECTION SITE PAIN [None]
  - SCAB [None]
